FAERS Safety Report 9129570 (Version 1)
Quarter: 2013Q1

REPORT INFORMATION
  Report Type: Spontaneous
  Country: US (occurrence: US)
  Receive Date: 20130228
  Receipt Date: 20130228
  Transmission Date: 20140127
  Serious: No
  Sender: FDA-Public Use
  Company Number: US-ABBOTT-13P-163-1033713-00

PATIENT
  Sex: Male
  Weight: 122.58 kg

DRUGS (10)
  1. ANDROGEL [Suspect]
     Indication: BLOOD TESTOSTERONE DECREASED
     Dosage: ONE PUMP
     Route: 061
     Dates: start: 2012, end: 201208
  2. ANDROGEL [Suspect]
     Route: 061
     Dates: end: 2012
  3. GABAPENTIN [Concomitant]
     Indication: PAIN
  4. GABAPENTIN [Concomitant]
     Indication: DIABETES MELLITUS
  5. EFFEXOR [Concomitant]
     Indication: DEPRESSION
  6. FLOMAX [Concomitant]
     Indication: URINARY INCONTINENCE
  7. NORCO [Concomitant]
     Indication: PRODUCT USED FOR UNKNOWN INDICATION
  8. SOMA [Concomitant]
     Indication: MYALGIA
  9. FLEXERIL [Concomitant]
     Indication: MUSCLE SPASMS
  10. METROGEL [Concomitant]
     Indication: ROSACEA

REACTIONS (3)
  - Therapeutic response unexpected [Unknown]
  - Drug administered at inappropriate site [Unknown]
  - Diabetic ulcer [Unknown]
